FAERS Safety Report 6536747-0 (Version None)
Quarter: 2010Q1

REPORT INFORMATION
  Report Type: 
  Country: None (occurrence: None)
  Receive Date: 20100113
  Receipt Date: 20100112
  Transmission Date: 20100710
  Serious: Yes (Other)
  Sender: FDA-Public Use
  Company Number: US-EISAI INC.-E7867-00089-SPO-US

PATIENT
  Age: 60 Year
  Sex: Male

DRUGS (1)
  1. GLIADEL [Suspect]
     Indication: MALIGNANT GLIOMA
     Route: 018
     Dates: start: 20091215

REACTIONS (1)
  - BLINDNESS [None]
